FAERS Safety Report 4825921-7 (Version None)
Quarter: 2005Q4

REPORT INFORMATION
  Report Type: 
  Country: None (occurrence: None)
  Receive Date: 20051111
  Receipt Date: 20051101
  Transmission Date: 20060501
  Serious: Yes (Hospitalization)
  Sender: FDA-Public Use
  Company Number: US-JNJFOC-20051100871

PATIENT
  Age: 39 Year
  Sex: Female

DRUGS (17)
  1. MOTRIN [Suspect]
     Indication: PAIN
  2. FELDENE [Interacting]
     Indication: PAIN
  3. SPIRONOLACTONE [Concomitant]
  4. PRINIVIL [Concomitant]
  5. PRILOSEC [Concomitant]
  6. SINEMET [Concomitant]
  7. SINEMET [Concomitant]
  8. ALBUTEROL [Concomitant]
  9. CLOBETASOL PROPIONATE [Concomitant]
  10. NITROGLYCERIN [Concomitant]
  11. TYLENOL (CAPLET) [Concomitant]
  12. PREDNISONE [Concomitant]
  13. OPCON-A [Concomitant]
  14. OPCON-A [Concomitant]
  15. ESTRADIOL INJ [Concomitant]
  16. PROVERA [Concomitant]
  17. LEVOTHROID [Concomitant]

REACTIONS (2)
  - COLITIS ISCHAEMIC [None]
  - DRUG INTERACTION [None]
